FAERS Safety Report 25289013 (Version 3)
Quarter: 2025Q3

REPORT INFORMATION
  Report Type: Spontaneous
  Country: EU (occurrence: EU)
  Receive Date: 20250509
  Receipt Date: 20250819
  Transmission Date: 20251021
  Serious: Yes (Other)
  Sender: NOVARTIS
  Company Number: EU-002147023-NVSC2025CZ014183

PATIENT
  Sex: Female
  Weight: 3.37 kg

DRUGS (3)
  1. ZOLGENSMA [Suspect]
     Active Substance: ONASEMNOGENE ABEPARVOVEC-XIOI
     Indication: Spinal muscular atrophy
     Route: 058
     Dates: start: 20230301, end: 20230301
  2. PREDNISONE [Concomitant]
     Active Substance: PREDNISONE
     Indication: Product used for unknown indication
     Route: 065
     Dates: start: 2023, end: 20230424
  3. Vigantol [Concomitant]
     Indication: Product used for unknown indication
     Route: 065

REACTIONS (8)
  - Psychomotor skills impaired [Unknown]
  - Haematochezia [Recovered/Resolved]
  - Haemolytic anaemia [Unknown]
  - Haematochezia [Recovered/Resolved]
  - Anaemia [Recovered/Resolved]
  - Motor dysfunction [Unknown]
  - Pyrexia [Recovered/Resolved]
  - Drug ineffective [Unknown]

NARRATIVE: CASE EVENT DATE: 20230101
